FAERS Safety Report 25844440 (Version 1)
Quarter: 2025Q3

REPORT INFORMATION
  Report Type: Spontaneous
  Country: CN (occurrence: CN)
  Receive Date: 20250925
  Receipt Date: 20250925
  Transmission Date: 20251020
  Serious: Yes (Other)
  Sender: NOVARTIS
  Company Number: CN-002147023-NVSC2025CN143768

PATIENT
  Age: 76 Year
  Sex: Female
  Weight: 45 kg

DRUGS (6)
  1. SACUBITRIL\VALSARTAN [Suspect]
     Active Substance: SACUBITRIL\VALSARTAN
     Indication: Hypertension
     Dosage: 50 MG, BID
     Route: 048
     Dates: start: 20250813, end: 20250813
  2. FUROSEMIDE [Suspect]
     Active Substance: FUROSEMIDE
     Indication: Pericardial effusion
     Dosage: 20 MG, QD (ROUTE: PUMP INJECTION)
     Route: 050
     Dates: start: 20250813, end: 20250814
  3. FUROSEMIDE [Suspect]
     Active Substance: FUROSEMIDE
     Indication: Pericardial effusion
     Dosage: 20 MG, QD
     Route: 048
     Dates: start: 20250813, end: 20250820
  4. SPIRONOLACTONE [Suspect]
     Active Substance: SPIRONOLACTONE
     Indication: Pericardial effusion
     Dosage: 20 MG, QD
     Route: 048
     Dates: start: 20250813, end: 20250820
  5. SODIUM CHLORIDE [Concomitant]
     Active Substance: SODIUM CHLORIDE
     Indication: Product used for unknown indication
     Route: 042
  6. AMLODIPINE BESYLATE [Concomitant]
     Active Substance: AMLODIPINE BESYLATE
     Indication: Product used for unknown indication
     Route: 048

REACTIONS (1)
  - Hypotension [Recovering/Resolving]

NARRATIVE: CASE EVENT DATE: 20250813
